FAERS Safety Report 5084674-0 (Version None)
Quarter: 2006Q3

REPORT INFORMATION
  Report Type: 
  Country: None (occurrence: None)
  Receive Date: 20060818
  Receipt Date: 20060818
  Transmission Date: 20061208
  Serious: No
  Sender: FDA-Public Use
  Company Number: None

PATIENT
  Age: 41 Year
  Sex: Male
  Weight: 71.2147 kg

DRUGS (6)
  1. MORPHINE [Suspect]
     Indication: ABDOMINAL PAIN
     Dosage: PCA     LESS THAN 1 DAY
     Dates: start: 20060816, end: 20060816
  2. COUMADIN [Concomitant]
  3. HEPARIN [Concomitant]
  4. THIAMINE [Concomitant]
  5. TRANXENE [Concomitant]
  6. MULTIVITAMIN [Concomitant]

REACTIONS (1)
  - PRURITUS [None]
